FAERS Safety Report 9975176 (Version 1)
Quarter: 2014Q1

REPORT INFORMATION
  Report Type: Report from Study
  Country: US (occurrence: US)
  Receive Date: 20140306
  Receipt Date: 20140306
  Transmission Date: 20141002
  Serious: Yes (Hospitalization, Other)
  Sender: FDA-Public Use
  Company Number: US-ABBVIE-13P-163-1161225-00

PATIENT
  Age: 64 Year
  Sex: Female
  Weight: 89.44 kg

DRUGS (1)
  1. HUMIRA [Suspect]
     Indication: RHEUMATOID ARTHRITIS
     Dates: start: 2010, end: 201206

REACTIONS (4)
  - Fall [Not Recovered/Not Resolved]
  - Lower limb fracture [Recovered/Resolved]
  - Back pain [Recovered/Resolved]
  - Osteoporosis [Unknown]
